FAERS Safety Report 8900795 (Version 2)
Quarter: 2014Q4

REPORT INFORMATION
  Report Type: Report from Study
  Country: DK (occurrence: DK)
  Receive Date: 20121109
  Receipt Date: 20141027
  Transmission Date: 20150529
  Serious: Yes (Hospitalization)
  Sender: FDA-Public Use
  Company Number: DK-ROCHE-1083322

PATIENT
  Age: 66 Year
  Sex: Female
  Weight: 75.2 kg

DRUGS (10)
  1. CYCLOPHOSPHAMIDE. [Suspect]
     Active Substance: CYCLOPHOSPHAMIDE
     Route: 042
     Dates: start: 20120813
  2. FLUOROURACIL. [Suspect]
     Active Substance: FLUOROURACIL
     Indication: BREAST CANCER
     Dosage: DOSAGE FORM: CONCENTRATE FOR SOLUTION FOR INFUSION, DATE OF LAST DOSE PRIOR TO ONSET OF AE:16/JUL/20
     Route: 042
     Dates: start: 20120606
  3. LANSOPRAZOLE. [Concomitant]
     Active Substance: LANSOPRAZOLE
     Route: 065
     Dates: start: 20120813
  4. BLINDED PERTUZUMAB [Suspect]
     Active Substance: PERTUZUMAB
     Dosage: MAINTANANCE DOSE
     Route: 042
  5. TRASTUZUMAB [Suspect]
     Active Substance: TRASTUZUMAB
     Indication: BREAST CANCER
     Dosage: MOST RECENT DOSE 13/AUG/2012, 24/SEP/2012; LOADING DOSE
     Route: 042
     Dates: start: 20120813
  6. TRASTUZUMAB [Suspect]
     Active Substance: TRASTUZUMAB
     Dosage: MAINTANANCE DOSE
     Route: 042
  7. BLINDED PERTUZUMAB [Suspect]
     Active Substance: PERTUZUMAB
     Indication: BREAST CANCER
     Dosage: MOST RECENT DOSE 13/AUG/2012, 24/SEP/2012; LOADING DOSE, CYCLE 1
     Route: 042
     Dates: start: 20120813
  8. DOCETAXEL. [Suspect]
     Active Substance: DOCETAXEL
     Indication: BREAST CANCER
     Dosage: MOST RECENT DOSE 13/AUG/2012, 24/SEP/2012
     Route: 042
     Dates: start: 20120813
  9. EPIRUBICIN [Suspect]
     Active Substance: EPIRUBICIN
     Indication: BREAST CANCER
     Dosage: DATE OF LAST DOSE PRIOR TO ONSET OF AE:16/JUL/2012?DATE OF LAST DOSE PRIOR TO AE FEBRILIA NEUTROPENI
     Route: 042
     Dates: start: 20120606
  10. CYCLOPHOSPHAMIDE. [Suspect]
     Active Substance: CYCLOPHOSPHAMIDE
     Indication: BREAST CANCER
     Dosage: DATE OF LAST DOSE PRIOR TO ONSET OF AE:16/JUL/2012?DATE OF LAST DOSE PRIOR TO AE FEBRILIA NEUTROPENI
     Route: 042
     Dates: start: 20120606, end: 20120808

REACTIONS (4)
  - Febrile neutropenia [Recovered/Resolved]
  - Skin infection [Recovered/Resolved]
  - Sepsis [Recovered/Resolved]
  - Sepsis [Recovered/Resolved]

NARRATIVE: CASE EVENT DATE: 20120619
